FAERS Safety Report 18476479 (Version 9)
Quarter: 2022Q1

REPORT INFORMATION
  Report Type: Spontaneous
  Country: PL (occurrence: PL)
  Receive Date: 20201106
  Receipt Date: 20220322
  Transmission Date: 20220423
  Serious: Yes (Hospitalization, Disabling, Other)
  Sender: FDA-Public Use
  Company Number: PL-GEN-2020-1246

PATIENT
  Age: 32 Year
  Sex: Female

DRUGS (13)
  1. OMEPRAZOLE [Interacting]
     Active Substance: OMEPRAZOLE
     Indication: Dyspepsia
     Dosage: 40 MILLIGRAM, ONCE A DAY (40 MG, 1X PER DAY )
     Route: 065
  2. ACETAMINOPHEN [Suspect]
     Active Substance: ACETAMINOPHEN
     Indication: Headache
     Dosage: 4 GRAM, ONCE A DAY
     Route: 065
  3. SERTRALINE [Suspect]
     Active Substance: SERTRALINE HYDROCHLORIDE
     Indication: Depression
     Dosage: 50 MILLIGRAM/SQ. METER, ONCE A DAY, (50 MG IN THE MORNING)
     Route: 048
  4. SERTRALINE [Suspect]
     Active Substance: SERTRALINE HYDROCHLORIDE
     Dosage: 100 MILLIGRAM, ONCE A DAY
     Route: 048
  5. HYDROXYZINE [Interacting]
     Active Substance: HYDROXYZINE HYDROCHLORIDE
     Indication: Dyspepsia
     Dosage: 25 MILLIGRAM, 3 TIMES A DAY
     Route: 065
  6. HYDROXYZINE [Interacting]
     Active Substance: HYDROXYZINE HYDROCHLORIDE
     Indication: Depressed mood
     Dosage: 75 MILLIGRAM, ONCE A DAY (25 MG, 3X PER DAY )
     Route: 065
  7. HYDROXYZINE [Interacting]
     Active Substance: HYDROXYZINE HYDROCHLORIDE
     Indication: Depression
  8. HYDROXYZINE [Interacting]
     Active Substance: HYDROXYZINE HYDROCHLORIDE
     Indication: Depressive symptom
  9. ITOPRIDE [Interacting]
     Active Substance: ITOPRIDE
     Indication: Dyspepsia
     Dosage: 150 MILLIGRAM, ONCE A DAY
     Route: 048
  10. ITOPRIDE [Interacting]
     Active Substance: ITOPRIDE
     Dosage: 50 MILLIGRAM, 3 TIMES A DAY
     Route: 048
  11. ITOPRIDE [Interacting]
     Active Substance: ITOPRIDE
     Dosage: 50 MILLIGRAM, TWO TIMES A DAY
     Route: 048
  12. ITOPRIDE [Interacting]
     Active Substance: ITOPRIDE
     Dosage: 100 MILLIGRAM, ONCE A DAY
     Route: 048
  13. SERTRALINE [Suspect]
     Active Substance: SERTRALINE HYDROCHLORIDE
     Indication: Depression
     Dosage: 100 MILLIGRAM, ONCE A DAY
     Route: 065

REACTIONS (14)
  - Drug interaction [Recovered/Resolved]
  - Paraesthesia [Recovered/Resolved]
  - Headache [Recovering/Resolving]
  - Constipation [Recovered/Resolved]
  - Asthenia [Unknown]
  - Dyspepsia [Recovered/Resolved]
  - Somnolence [Recovering/Resolving]
  - Nausea [Recovered/Resolved]
  - Depression [Unknown]
  - Gastric disorder [Recovering/Resolving]
  - Therapeutic product effect incomplete [Unknown]
  - Hypersomnia [Unknown]
  - Decreased immune responsiveness [Unknown]
  - Condition aggravated [Unknown]
